FAERS Safety Report 23747390 (Version 1)
Quarter: 2024Q2

REPORT INFORMATION
  Report Type: Spontaneous
  Country: JP (occurrence: JP)
  Receive Date: 20240416
  Receipt Date: 20240416
  Transmission Date: 20240715
  Serious: Yes (Other)
  Sender: FDA-Public Use
  Company Number: JP-BRISTOL-MYERS SQUIBB COMPANY-2024-059405

PATIENT

DRUGS (1)
  1. VIDAZA [Suspect]
     Active Substance: AZACITIDINE
     Indication: Acute leukaemia
     Dosage: -1
     Route: 042

REACTIONS (6)
  - Pyrexia [Unknown]
  - Arrhythmia [Unknown]
  - Bone pain [Unknown]
  - Conjunctivitis [Unknown]
  - Polyuria [Unknown]
  - Oedema peripheral [Unknown]
